FAERS Safety Report 5081589-9 (Version None)
Quarter: 2006Q3

REPORT INFORMATION
  Report Type: 
  Country: None (occurrence: None)
  Receive Date: 20060811
  Receipt Date: 20060801
  Transmission Date: 20061208
  Serious: Yes (Life-Threatening, Hospitalization)
  Sender: FDA-Public Use
  Company Number: S06-USA-02124-01

PATIENT
  Sex: Male

DRUGS (1)
  1. INFASURF PRESERVATIVE FREE [Suspect]
     Indication: RESPIRATORY DISTRESS
     Dates: start: 20060326, end: 20060326

REACTIONS (10)
  - CARDIO-RESPIRATORY ARREST [None]
  - CYANOSIS NEONATAL [None]
  - HEART RATE DECREASED [None]
  - INTRAVENTRICULAR HAEMORRHAGE NEONATAL [None]
  - NEONATAL DISORDER [None]
  - NEONATAL HYPOTENSION [None]
  - NEONATAL HYPOXIA [None]
  - OBSTRUCTIVE AIRWAYS DISORDER [None]
  - OXYGEN SATURATION DECREASED [None]
  - RESPIRATORY DISORDER NEONATAL [None]
